FAERS Safety Report 20347372 (Version 1)
Quarter: 2022Q1

REPORT INFORMATION
  Report Type: Spontaneous
  Country: US (occurrence: None)
  Receive Date: 20220118
  Receipt Date: 20220118
  Transmission Date: 20220423
  Serious: Yes (Death)
  Sender: FDA-Public Use
  Company Number: None

PATIENT
  Age: 73 Year
  Sex: Female

DRUGS (1)
  1. REVLIMID [Suspect]
     Active Substance: LENALIDOMIDE
     Indication: Plasma cell myeloma
     Dosage: FREQUENCY : EVERY OTHER DAY;?
     Route: 048
     Dates: start: 20211209, end: 20220117

REACTIONS (8)
  - Septic shock [None]
  - Urinary tract infection [None]
  - Dialysis [None]
  - Renal failure [None]
  - Pulmonary oedema [None]
  - Hypotension [None]
  - Unresponsive to stimuli [None]
  - Ventricular tachycardia [None]

NARRATIVE: CASE EVENT DATE: 20220117
